FAERS Safety Report 9149319 (Version 1)
Quarter: 2013Q1

REPORT INFORMATION
  Report Type: Spontaneous
  Country: US (occurrence: US)
  Receive Date: 20130308
  Receipt Date: 20130308
  Transmission Date: 20140127
  Serious: Yes (Other)
  Sender: FDA-Public Use
  Company Number: US-JNJFOC-20120811674

PATIENT
  Sex: Male

DRUGS (1)
  1. RISPERDAL [Suspect]
     Indication: SCHIZOPHRENIA
     Route: 048
     Dates: start: 2001

REACTIONS (6)
  - Type 2 diabetes mellitus [Unknown]
  - Sexual dysfunction [Unknown]
  - Hypertension [Unknown]
  - Hyperlipidaemia [Unknown]
  - Tardive dyskinesia [Recovered/Resolved]
  - Gynaecomastia [Unknown]
